FAERS Safety Report 13844802 (Version 1)
Quarter: 2017Q3

REPORT INFORMATION
  Report Type: Other
  Country: NL (occurrence: NL)
  Receive Date: 20170808
  Receipt Date: 20170808
  Transmission Date: 20171127
  Serious: Yes (Death)
  Sender: FDA-Public Use
  Company Number: NL-ORCHID HEALTHCARE-2024318

PATIENT
  Age: 55 Year
  Sex: Female

DRUGS (5)
  1. LORAZEPAM. [Suspect]
     Active Substance: LORAZEPAM
     Route: 065
  2. PARACETAMOL [Suspect]
     Active Substance: ACETAMINOPHEN
     Route: 065
  3. SERTRALINE [Suspect]
     Active Substance: SERTRALINE HYDROCHLORIDE
     Route: 065
  4. NIFEDIPINE. [Suspect]
     Active Substance: NIFEDIPINE
     Route: 065
  5. OLANZAPINE. [Suspect]
     Active Substance: OLANZAPINE
     Route: 065

REACTIONS (16)
  - Serotonin syndrome [Fatal]
  - Acute respiratory distress syndrome [Fatal]
  - Hypotension [Fatal]
  - Coma scale abnormal [Fatal]
  - Hyperreflexia [Fatal]
  - Metabolic acidosis [Fatal]
  - Blood creatine phosphokinase increased [Fatal]
  - Shock [Fatal]
  - Blood lactic acid increased [Fatal]
  - Tachypnoea [Fatal]
  - Tachycardia [Fatal]
  - Hypothermia [Fatal]
  - Hypertonia [Fatal]
  - Rhabdomyolysis [Fatal]
  - Multiple organ dysfunction syndrome [Fatal]
  - Autonomic nervous system imbalance [Fatal]
